FAERS Safety Report 8975344 (Version 1)
Quarter: 2012Q4

REPORT INFORMATION
  Report Type: 
  Country: US (occurrence: US)
  Receive Date: 20121219
  Receipt Date: 20121219
  Transmission Date: 20130627
  Serious: Yes (Death)
  Sender: FDA-Public Use
  Company Number: PHEH2012US024823

PATIENT
  Age: 77 Year
  Sex: Male

DRUGS (2)
  1. GLEEVEC [Suspect]
     Indication: GASTRIC CANCER
     Dosage: 600 mg, QD
     Route: 048
     Dates: start: 20120821
  2. GLEEVEC [Suspect]
     Dosage: 600 mg, QD
     Route: 048

REACTIONS (1)
  - Death [Fatal]
